FAERS Safety Report 8827537 (Version 2)
Quarter: 2012Q4

REPORT INFORMATION
  Report Type: 
  Country: DE (occurrence: DE)
  Receive Date: 20121005
  Receipt Date: 20121102
  Transmission Date: 20130627
  Serious: Yes (Other)
  Sender: FDA-Public Use
  Company Number: DE-BRISTOL-MYERS SQUIBB COMPANY-16997140

PATIENT
  Age: 63 Year
  Sex: Male

DRUGS (3)
  1. KARVEA [Suspect]
     Indication: HYPERTENSION
     Dosage: 1DF:1/3 of a tab daily
     Dates: start: 201111
  2. KALINOR [Concomitant]
  3. SOTALEX [Concomitant]

REACTIONS (3)
  - Atrial fibrillation [Unknown]
  - Hypokalaemia [Unknown]
  - Wrong technique in drug usage process [None]
